FAERS Safety Report 7865476-6 (Version None)
Quarter: 2011Q4

REPORT INFORMATION
  Report Type: 
  Country: None (occurrence: None)
  Receive Date: 20111028
  Receipt Date: 20110105
  Transmission Date: 20120403
  Serious: No
  Sender: FDA-Public Use
  Company Number: US-GLAXOSMITHKLINE-A0903350A

PATIENT
  Age: 71 Year
  Sex: Female

DRUGS (5)
  1. POTASSIUM [Concomitant]
  2. RESCUE REMEDY [Concomitant]
  3. ADVAIR DISKUS 100/50 [Suspect]
     Indication: ASTHMA
     Dosage: 1PUFF TWICE PER DAY
     Route: 055
     Dates: start: 20070101
  4. UNSPECIFIED MEDICATION [Concomitant]
     Indication: HERPES ZOSTER
  5. VITAMIN TAB [Concomitant]

REACTIONS (2)
  - PRODUCT QUALITY ISSUE [None]
  - INHALATION THERAPY [None]
